FAERS Safety Report 8579022-5 (Version None)
Quarter: 2012Q3

REPORT INFORMATION
  Report Type: 
  Country: None (occurrence: None)
  Receive Date: 20120808
  Receipt Date: 20120731
  Transmission Date: 20120928
  Serious: Yes (Other)
  Sender: FDA-Public Use
  Company Number: AU-JNJFOC-20120100560

PATIENT
  Sex: Male

DRUGS (10)
  1. STELARA [Suspect]
     Indication: PRODUCT USED FOR UNKNOWN INDICATION
     Route: 058
     Dates: start: 20110514
  2. STELARA [Suspect]
     Route: 058
     Dates: start: 20100901
  3. STELARA [Suspect]
     Route: 058
     Dates: start: 20120708
  4. STELARA [Suspect]
     Route: 058
     Dates: start: 20101128
  5. STELARA [Suspect]
     Route: 058
     Dates: start: 20100505
  6. STELARA [Suspect]
     Route: 058
     Dates: start: 20120610
  7. STELARA [Suspect]
     Route: 058
     Dates: start: 20110214
  8. STELARA [Suspect]
     Route: 058
     Dates: start: 20110730
  9. STELARA [Suspect]
     Route: 058
     Dates: start: 20111006
  10. STELARA [Suspect]
     Route: 058
     Dates: start: 20100531

REACTIONS (3)
  - DRUG DOSE OMISSION [None]
  - HIP ARTHROPLASTY [None]
  - SKIN DISORDER [None]
